FAERS Safety Report 9767710 (Version 1)
Quarter: 2013Q4

REPORT INFORMATION
  Report Type: Spontaneous
  Country: IT (occurrence: IT)
  Receive Date: 20131217
  Receipt Date: 20131217
  Transmission Date: 20140711
  Serious: Yes (Hospitalization)
  Sender: FDA-Public Use
  Company Number: PHHY2013IT145616

PATIENT
  Sex: Female

DRUGS (11)
  1. METFORMIN [Suspect]
     Dosage: 1500 MG, ONCE/SINGLE
     Route: 048
     Dates: start: 20130417, end: 20130417
  2. BISOPROLOL [Suspect]
     Dosage: 3 DF, ONCE/SINGLE
     Route: 048
     Dates: start: 20130417, end: 20130417
  3. TAVOR (LORAZEPAM) [Suspect]
     Dosage: 6 DF, ONCE/SINGLE
     Route: 048
     Dates: start: 20130417, end: 20130417
  4. CIPRALEX//ESCITALOPRAM [Suspect]
     Dosage: 3 DF, ONCE/SINGLE
     Route: 048
     Dates: start: 20130417, end: 20130417
  5. DIAMICRON [Suspect]
     Dosage: 3 DF, ONCE/SINGLE
     Route: 048
     Dates: start: 20130417, end: 20130417
  6. TACHIPIRINA [Suspect]
     Dosage: 3 DF, ONCE/SINGLE
     Route: 048
     Dates: start: 20130417, end: 20130417
  7. SERENASE [Suspect]
     Dosage: 2 DF, ONCE/SINGLE
     Route: 048
     Dates: start: 20130417, end: 20130417
  8. COUMADIN//WARFARIN SODIUM [Concomitant]
  9. DIBASE [Concomitant]
     Dosage: 1 UKN, QMO
     Route: 030
  10. NEXIUM//ESOMEPRAZOLE SODIUM [Concomitant]
  11. ISOPTIN [Concomitant]

REACTIONS (4)
  - Psychomotor hyperactivity [Recovered/Resolved]
  - Somnolence [Recovered/Resolved]
  - Bradycardia [Recovered/Resolved]
  - Intentional overdose [Recovered/Resolved]
